FAERS Safety Report 15939170 (Version 3)
Quarter: 2019Q4

REPORT INFORMATION
  Report Type: Spontaneous
  Country: US (occurrence: US)
  Receive Date: 20190208
  Receipt Date: 20191230
  Transmission Date: 20200122
  Serious: No
  Sender: FDA-Public Use
  Company Number: US-PFIZER INC-2019058161

PATIENT
  Age: 65 Year
  Sex: Female
  Weight: 68.4 kg

DRUGS (2)
  1. XELJANZ XR [Suspect]
     Active Substance: TOFACITINIB CITRATE
     Indication: RHEUMATOID ARTHRITIS
     Dosage: 11 MG, 1X/DAY (11MG, 1 TABLET BY MOUTH DAILY IN THE MORNING)
     Route: 048
  2. RESTASIS [Concomitant]
     Active Substance: CYCLOSPORINE
     Dosage: 2 GTT, 2X/DAY [0.05% ONE DROP BOTH EYES EVERY 12 HOURS]

REACTIONS (8)
  - Blood triglycerides increased [Unknown]
  - Infection [Recovered/Resolved]
  - Low density lipoprotein increased [Unknown]
  - Nasopharyngitis [Recovering/Resolving]
  - Dysphagia [Unknown]
  - Joint swelling [Recovered/Resolved]
  - Hypersensitivity [Unknown]
  - Malaise [Recovering/Resolving]

NARRATIVE: CASE EVENT DATE: 20191201
